FAERS Safety Report 7163811-8 (Version None)
Quarter: 2010Q4

REPORT INFORMATION
  Report Type: 
  Country: None (occurrence: None)
  Receive Date: 20101215
  Receipt Date: 20100617
  Transmission Date: 20110411
  Serious: Yes (Other)
  Sender: FDA-Public Use
  Company Number: DK-PFIZER INC-2010075710

PATIENT
  Age: 45 Year
  Sex: Female

DRUGS (1)
  1. LYRICA [Suspect]
     Indication: ANXIETY
     Dosage: 75 MG, 3X/DAY
     Dates: start: 20090101

REACTIONS (7)
  - FATIGUE [None]
  - FOOD CRAVING [None]
  - INITIAL INSOMNIA [None]
  - LIBIDO DECREASED [None]
  - MUSCLE FATIGUE [None]
  - PERIPHERAL COLDNESS [None]
  - POLLAKIURIA [None]
